FAERS Safety Report 25010799 (Version 1)
Quarter: 2025Q1

REPORT INFORMATION
  Report Type: Spontaneous
  Country: US (occurrence: US)
  Receive Date: 20250225
  Receipt Date: 20250225
  Transmission Date: 20250409
  Serious: Yes (Death, Life-Threatening, Hospitalization, Other)
  Sender: SANDOZ
  Company Number: US-SANDOZ-SDZ2025US011694

PATIENT
  Age: 27 Year
  Sex: Male

DRUGS (2)
  1. METHOTREXATE [Suspect]
     Active Substance: METHOTREXATE
     Indication: Crohn^s disease
     Dosage: 25 MG, QW
     Route: 065
  2. INFLIXIMAB [Concomitant]
     Active Substance: INFLIXIMAB
     Indication: Product used for unknown indication
     Route: 042

REACTIONS (7)
  - Encephalitis brain stem [Fatal]
  - Acute hepatic failure [Fatal]
  - Disseminated varicella zoster virus infection [Fatal]
  - Renal failure [Fatal]
  - Pneumonitis [Fatal]
  - Disseminated intravascular coagulation [Unknown]
  - Product use in unapproved indication [Unknown]
